FAERS Safety Report 4863159-8 (Version None)
Quarter: 2005Q4

REPORT INFORMATION
  Report Type: 
  Country: None (occurrence: None)
  Receive Date: 20051214
  Receipt Date: 20051128
  Transmission Date: 20060501
  Serious: Yes (Other)
  Sender: FDA-Public Use
  Company Number: 200512006BBE

PATIENT
  Sex: Female

DRUGS (4)
  1. HYPRHO-D [Suspect]
     Indication: PREGNANCY
  2. HYPERRHO S/D [Suspect]
     Indication: PREGNANCY
  3. INJECTABLE GLOBULIN                  (IMMUNOGLOBULIN HUMAN NORMAL) [Suspect]
     Indication: PREGNANCY
  4. INJECTABLE GLOBULIN                 (IMMUNOGLOBULIN HUMAN NORMAL) [Suspect]
     Indication: PREGNANCY

REACTIONS (2)
  - ADVERSE EVENT [None]
  - DRUG EXPOSURE DURING PREGNANCY [None]
